FAERS Safety Report 9107874 (Version 1)
Quarter: 2013Q1

REPORT INFORMATION
  Report Type: Spontaneous
  Country: US (occurrence: US)
  Receive Date: 20130221
  Receipt Date: 20130221
  Transmission Date: 20140127
  Serious: No
  Sender: FDA-Public Use
  Company Number: US-PFIZER INC-2013061357

PATIENT
  Age: 77 Year
  Sex: Male
  Weight: 73.92 kg

DRUGS (3)
  1. XALKORI [Suspect]
     Indication: LUNG NEOPLASM MALIGNANT
     Dosage: 250 MG, 1 CAPSULE TWICE A DAY
     Route: 048
  2. ASA [Concomitant]
     Dosage: 81 MG EC, UNK
     Route: 048
  3. IRON [Concomitant]
     Dosage: 27 MG, UNK
     Route: 048

REACTIONS (3)
  - Cough [Unknown]
  - Myalgia [Unknown]
  - Influenza like illness [Unknown]
